FAERS Safety Report 9186069 (Version 2)
Quarter: 2013Q2

REPORT INFORMATION
  Report Type: Report from Study
  Country: US (occurrence: US)
  Receive Date: 20130325
  Receipt Date: 20130507
  Transmission Date: 20140414
  Serious: Yes (Hospitalization, Other)
  Sender: FDA-Public Use
  Company Number: US-TEVA-393577USA

PATIENT
  Age: 21 Year
  Sex: Male

DRUGS (4)
  1. CLOZAPINE [Suspect]
     Indication: BIPOLAR DISORDER
     Route: 048
     Dates: end: 20130318
  2. BACTRIM [Suspect]
  3. MINOCYCLINE [Concomitant]
  4. LITHIUM [Concomitant]

REACTIONS (5)
  - Anaemia [Recovered/Resolved]
  - Self injurious behaviour [Unknown]
  - Psychotic disorder [Unknown]
  - Mental impairment [Unknown]
  - Hallucination [Unknown]
